FAERS Safety Report 9510105 (Version 3)
Quarter: 2014Q2

REPORT INFORMATION
  Report Type: Report from Study
  Country: US (occurrence: US)
  Receive Date: 20130909
  Receipt Date: 20140425
  Transmission Date: 20141212
  Serious: Yes (Other)
  Sender: FDA-Public Use
  Company Number: US-PURDUE-USA-2013-0106025

PATIENT
  Age: 78 Year
  Sex: Female

DRUGS (1)
  1. OXYCONTIN (NDA 22-272) [Suspect]
     Indication: FIBROMYALGIA
     Dosage: 40 MG, BID
     Route: 048
     Dates: start: 2003

REACTIONS (2)
  - Renal failure acute [Recovered/Resolved]
  - Renal failure [Not Recovered/Not Resolved]
